FAERS Safety Report 8880123 (Version 1)
Quarter: 2012Q4

REPORT INFORMATION
  Report Type: 
  Country: US (occurrence: US)
  Receive Date: 20121101
  Receipt Date: 20121101
  Transmission Date: 20130627
  Serious: Yes (Other)
  Sender: FDA-Public Use
  Company Number: US-PERRIGO-12US009264

PATIENT
  Age: 61 Year
  Sex: Female
  Weight: 65.76 kg

DRUGS (5)
  1. GUAIFENESIN 20 MG/ML TUSSIN CS 310 [Suspect]
     Indication: COUGH
     Dosage: 400 mg, single
     Route: 048
     Dates: start: 20121022, end: 20121022
  2. GUAIFENESIN 20 MG/ML TUSSIN CS 310 [Suspect]
     Dosage: UNK, UNK
     Route: 048
  3. TOPAMAX [Concomitant]
     Indication: CONVULSION
     Dosage: UNK, UNK
     Route: 048
  4. PAXIL [Concomitant]
     Indication: CONVULSION
     Dosage: 60 mg, UNK
     Route: 048
  5. RESCUE INHALER [Concomitant]

REACTIONS (6)
  - Hallucination, auditory [Recovered/Resolved]
  - Hallucination, visual [Recovered/Resolved]
  - Dizziness [Recovered/Resolved]
  - Rash papular [Unknown]
  - Pruritus [Unknown]
  - Rash [Unknown]
